FAERS Safety Report 7057103-5 (Version None)
Quarter: 2010Q4

REPORT INFORMATION
  Report Type: 
  Country: None (occurrence: None)
  Receive Date: 20101022
  Receipt Date: 20091221
  Transmission Date: 20110411
  Serious: No
  Sender: FDA-Public Use
  Company Number: US-BAYER-200943918NA

PATIENT
  Age: 37 Year
  Sex: Female
  Weight: 118 kg

DRUGS (3)
  1. MIRENA [Suspect]
     Indication: CONTRACEPTION
     Route: 015
     Dates: start: 20090501
  2. TAMACORT [Concomitant]
     Indication: PALPITATIONS
  3. TOPROL-XL [Concomitant]
     Indication: PALPITATIONS

REACTIONS (5)
  - ACNE [None]
  - ANXIETY [None]
  - LIBIDO DECREASED [None]
  - PALPITATIONS [None]
  - VULVOVAGINAL DRYNESS [None]
